FAERS Safety Report 4642210-4 (Version None)
Quarter: 2005Q2

REPORT INFORMATION
  Report Type: 
  Country: None (occurrence: None)
  Receive Date: 20050420
  Receipt Date: 20050413
  Transmission Date: 20051028
  Serious: No
  Sender: FDA-Public Use
  Company Number: 2005UW05783

PATIENT
  Age: 73 Year
  Sex: Male

DRUGS (8)
  1. CRESTOR [Suspect]
     Dosage: 20 MG DAILY PO
     Route: 048
  2. SEPTRA [Suspect]
  3. ASPIRIN [Concomitant]
  4. METFROMIN [Concomitant]
  5. METOPROLOL TARTRATE [Concomitant]
  6. PLAVIX [Concomitant]
  7. REMINYL [Concomitant]
  8. TRAZIDE [Concomitant]

REACTIONS (6)
  - BLOOD CREATINE PHOSPHOKINASE INCREASED [None]
  - DIFFICULTY IN WALKING [None]
  - MUSCULAR WEAKNESS [None]
  - NAUSEA [None]
  - RHABDOMYOLYSIS [None]
  - VOMITING [None]
